FAERS Safety Report 9920885 (Version 2)
Quarter: 2015Q4

REPORT INFORMATION
  Report Type: Report from Study
  Country: US (occurrence: US)
  Receive Date: 20140225
  Receipt Date: 20151116
  Transmission Date: 20160305
  Serious: Yes (Other)
  Sender: FDA-Public Use
  Company Number: US-ROCHE-1333498

PATIENT
  Sex: Female

DRUGS (14)
  1. LUCENTIS [Suspect]
     Active Substance: RANIBIZUMAB
     Indication: CYSTOID MACULAR OEDEMA
  2. MYDRIACYL [Concomitant]
     Active Substance: TROPICAMIDE
  3. LUCENTIS [Suspect]
     Active Substance: RANIBIZUMAB
     Indication: VENOUS OCCLUSION
     Route: 050
     Dates: start: 20100826
  4. PRAVASTATIN SODIUM. [Concomitant]
     Active Substance: PRAVASTATIN SODIUM
     Route: 065
     Dates: start: 20110331
  5. AVASTIN [Suspect]
     Active Substance: BEVACIZUMAB
     Indication: RETINAL VEIN OCCLUSION
     Route: 050
     Dates: start: 20110228
  6. AVASTIN [Suspect]
     Active Substance: BEVACIZUMAB
     Indication: CYSTOID MACULAR OEDEMA
  7. LUTEIN [Concomitant]
     Active Substance: LUTEIN
     Route: 065
  8. LEVOTHYROXINE SODIUM. [Concomitant]
     Active Substance: LEVOTHYROXINE SODIUM
     Route: 065
     Dates: start: 20100326
  9. COD LIVER OIL [Concomitant]
     Active Substance: COD LIVER OIL
     Route: 065
     Dates: start: 20100326
  10. FISH OIL [Concomitant]
     Active Substance: FISH OIL
     Route: 065
     Dates: start: 20100326
  11. DILTIAZEM HYDROCHLORIDE EXTENDED RELEASE [Concomitant]
     Active Substance: DILTIAZEM HYDROCHLORIDE
     Route: 065
     Dates: start: 20100326
  12. ECOTRIN [Concomitant]
     Active Substance: ASPIRIN
     Route: 065
     Dates: start: 20100326
  13. EVISTA [Concomitant]
     Active Substance: RALOXIFENE HYDROCHLORIDE
     Route: 065
     Dates: start: 20100326
  14. ALPHAGAN P [Concomitant]
     Active Substance: BRIMONIDINE TARTRATE

REACTIONS (5)
  - Retinal oedema [Unknown]
  - Vision blurred [Unknown]
  - Pain [Unknown]
  - Drug ineffective [Unknown]
  - Vitreous detachment [Unknown]
